FAERS Safety Report 10861912 (Version 1)
Quarter: 2015Q1

REPORT INFORMATION
  Report Type: Spontaneous
  Country: US (occurrence: US)
  Receive Date: 20150224
  Receipt Date: 20150224
  Transmission Date: 20150721
  Serious: No
  Sender: FDA-Public Use
  Company Number: US-009507513-1502USA009035

PATIENT
  Sex: Female

DRUGS (1)
  1. COZAAR [Suspect]
     Active Substance: LOSARTAN POTASSIUM
     Dosage: UNKNOWN
     Route: 048

REACTIONS (4)
  - Heart rate irregular [Unknown]
  - Unevaluable event [Unknown]
  - Drug ineffective [Unknown]
  - Dizziness [Unknown]
